FAERS Safety Report 16265174 (Version 1)
Quarter: 2019Q2

REPORT INFORMATION
  Report Type: Spontaneous
  Country: US (occurrence: US)
  Receive Date: 20190501
  Receipt Date: 20190501
  Transmission Date: 20190711
  Serious: No
  Sender: FDA-Public Use
  Company Number: None

PATIENT
  Age: 64 Year
  Sex: Female
  Weight: 57.6 kg

DRUGS (4)
  1. PREMARIN [Suspect]
     Active Substance: ESTROGENS, CONJUGATED
     Indication: VULVOVAGINAL BURNING SENSATION
     Dosage: ?          OTHER FREQUENCY:2 TIMES /WEEK;?
     Route: 067
  2. MONISTAT 7 [Suspect]
     Active Substance: MICONAZOLE NITRATE
     Indication: VULVOVAGINAL PRURITUS
     Dates: start: 20180825, end: 20180825
  3. PREMARIN [Suspect]
     Active Substance: ESTROGENS, CONJUGATED
     Indication: VULVOVAGINAL PRURITUS
     Dosage: ?          OTHER FREQUENCY:2 TIMES /WEEK;?
     Route: 067
  4. MONISTAT 7 [Suspect]
     Active Substance: MICONAZOLE NITRATE
     Indication: VULVOVAGINAL BURNING SENSATION
     Dates: start: 20180825, end: 20180825

REACTIONS (6)
  - Manufacturing materials issue [None]
  - Wrong product administered [None]
  - Thermal burn [None]
  - Product complaint [None]
  - Vulvovaginal injury [None]
  - Condition aggravated [None]

NARRATIVE: CASE EVENT DATE: 20180825
